FAERS Safety Report 9892355 (Version 1)
Quarter: 2014Q1

REPORT INFORMATION
  Report Type: Spontaneous
  Country: FR (occurrence: FR)
  Receive Date: 20140212
  Receipt Date: 20140212
  Transmission Date: 20141002
  Serious: Yes (Hospitalization)
  Sender: FDA-Public Use
  Company Number: PHHY2014FR015963

PATIENT
  Age: 0 Day
  Sex: Male
  Weight: 2.38 kg

DRUGS (13)
  1. TEGRETOL [Suspect]
     Dosage: (MATERNAL DOSE 800MG QD)
     Route: 064
     Dates: end: 20131213
  2. ZONEGRAN [Suspect]
     Dosage: (MATERNAL DOSE 400 MG, QD)
     Route: 064
     Dates: end: 20131213
  3. EPITOMAX [Suspect]
     Dosage: (MATERNAL DOSE 100 MG, QD)
  4. EPITOMAX [Suspect]
     Dosage: (MATERNAL DOSE 100 MG, BID)
     Route: 064
     Dates: end: 20131213
  5. DIAZEPAM [Suspect]
     Dosage: (MATERNAL DOSE 20 MG, QD)
     Route: 064
  6. DIAZEPAM [Suspect]
     Dosage: (MATERNAL DOSE50 MG, BID)
     Route: 064
     Dates: end: 20131213
  7. NOZINAN [Suspect]
     Dosage: (MATERNAL DOSE  UNKNOWN)
     Route: 064
  8. NOZINAN [Suspect]
     Dosage: (MATERNAL DOSE 200 MG, BID)
     Route: 064
     Dates: end: 20131213
  9. LAROXYL [Suspect]
     Dosage: (MATERNAL DOSE 50 MG, DAILY)
     Route: 064
     Dates: start: 2013
  10. LAROXYL [Suspect]
     Dosage: (MATERNAL DOSE: 12.5 MG IN THE MORNING, 12.5 MG AT MIDDAY AND 25 MG IN THE EVENING)
     Route: 064
     Dates: end: 20131213
  11. ATARAX [Concomitant]
     Dosage: (MATERNAL DOSE 50 MG, QD)
     Route: 064
  12. NURFLEX [Concomitant]
     Dosage: (MATERNAL DOSE: 200 TO 800 MG)
     Route: 064
  13. EUPANTOL [Concomitant]
     Dosage: (MATERNAL DOSE 20 MG, QD)
     Route: 064

REACTIONS (3)
  - Respiratory distress [Recovered/Resolved]
  - Withdrawal syndrome [Recovered/Resolved]
  - Foetal malnutrition [Recovering/Resolving]
